FAERS Safety Report 6030519-1 (Version None)
Quarter: 2009Q1

REPORT INFORMATION
  Report Type: 
  Country: None (occurrence: None)
  Receive Date: 20090106
  Receipt Date: 20090106
  Transmission Date: 20090719
  Serious: Yes (Hospitalization)
  Sender: FDA-Public Use
  Company Number: None

PATIENT
  Sex: Female
  Weight: 65.3 kg

DRUGS (10)
  1. CARBOPLATIN [Suspect]
     Dosage: 568 MG
     Dates: end: 20081208
  2. TAXOL [Suspect]
     Dosage: 303 MG
     Dates: end: 20081208
  3. ATIVAN [Concomitant]
  4. CEFEPIME [Concomitant]
  5. CHOLESTYRAMINE [Concomitant]
  6. COMPAZINE [Concomitant]
  7. DECADRON [Concomitant]
  8. REGLAN [Concomitant]
  9. VANCOMYCIN HYDROCHLORIDE [Concomitant]
  10. ZOFRAN [Concomitant]

REACTIONS (4)
  - DYSPNOEA [None]
  - FEBRILE NEUTROPENIA [None]
  - PLATELET COUNT DECREASED [None]
  - WHITE BLOOD CELL COUNT DECREASED [None]
